FAERS Safety Report 5084314-0 (Version None)
Quarter: 2006Q3

REPORT INFORMATION
  Report Type: 
  Country: None (occurrence: None)
  Receive Date: 20060821
  Receipt Date: 20060817
  Transmission Date: 20061208
  Serious: Yes (Death)
  Sender: FDA-Public Use
  Company Number: US-BAYER-200613556GDS

PATIENT
  Age: 43 Year
  Sex: Male

DRUGS (7)
  1. APROTININ [Suspect]
     Indication: OPERATIVE HAEMORRHAGE
     Route: 042
  2. APROTININ [Suspect]
     Route: 042
  3. 0.2%-0.3% ISOFLURANE [Concomitant]
     Indication: ANAESTHESIA
     Route: 065
  4. FENTANYL [Concomitant]
     Indication: ANAESTHESIA
  5. PANCURONIUM [Concomitant]
     Indication: HYPOTONIA
  6. CALCIUM CHLORIDE [Concomitant]
     Indication: DRUG USE FOR UNKNOWN INDICATION
     Route: 042
  7. DOPAMINE [Concomitant]
     Indication: DRUG USE FOR UNKNOWN INDICATION
     Route: 042

REACTIONS (4)
  - EMBOLISM [None]
  - HYPOTENSION [None]
  - PULMONARY ARTERIAL PRESSURE INCREASED [None]
  - THERAPY NON-RESPONDER [None]
